FAERS Safety Report 8834263 (Version 1)
Quarter: 2012Q4

REPORT INFORMATION
  Report Type: 
  Country: US (occurrence: US)
  Receive Date: 20121010
  Receipt Date: 20121010
  Transmission Date: 20130627
  Serious: Yes (Hospitalization)
  Sender: FDA-Public Use
  Company Number: US-ARROW-2012-17170

PATIENT
  Age: 42 Year
  Sex: Male

DRUGS (2)
  1. AZATHIOPRINE (UNKNOWN) [Suspect]
     Indication: COLITIS ULCERATIVE
     Dosage: 150 mg, daily
     Route: 065
  2. PREDNISONE (WATSON LABORATORIES) [Suspect]
     Indication: COLITIS ULCERATIVE
     Dosage: 35 mg, daily
     Route: 065

REACTIONS (2)
  - Inappropriate antidiuretic hormone secretion [Recovered/Resolved]
  - Meningitis cryptococcal [Recovered/Resolved]
